FAERS Safety Report 4512566-1 (Version None)
Quarter: 2004Q4

REPORT INFORMATION
  Report Type: 
  Country: None (occurrence: None)
  Receive Date: 20041129
  Receipt Date: 20041119
  Transmission Date: 20050328
  Serious: Yes (Life-Threatening, Hospitalization)
  Sender: FDA-Public Use
  Company Number: GB-MERCK-0411USA03443

PATIENT
  Age: 56 Year

DRUGS (5)
  1. PRINIVIL [Suspect]
     Indication: HYPERTENSION
     Route: 048
     Dates: start: 20010313, end: 20041108
  2. PAROXETINE [Concomitant]
     Indication: STRESS SYMPTOMS
     Route: 048
     Dates: start: 20020610
  3. PAROXETINE [Concomitant]
     Indication: DEPRESSION
     Route: 048
     Dates: start: 20020610
  4. CALCICARD [Concomitant]
     Indication: HYPERTENSION
     Route: 048
     Dates: start: 20020128
  5. SIMVASTATIN [Concomitant]
     Indication: BLOOD CHOLESTEROL INCREASED
     Route: 048
     Dates: start: 20040604, end: 20040605

REACTIONS (4)
  - DYSPNOEA [None]
  - GENERAL SYMPTOM [None]
  - OEDEMA MOUTH [None]
  - SWOLLEN TONGUE [None]
